FAERS Safety Report 12430380 (Version 2)
Quarter: 2016Q2

REPORT INFORMATION
  Report Type: Report from Study
  Country: US (occurrence: US)
  Receive Date: 20160602
  Receipt Date: 20160615
  Transmission Date: 20160815
  Serious: Yes (Hospitalization)
  Sender: FDA-Public Use
  Company Number: US-ACTELION-A-US2016-137031

PATIENT
  Age: 59 Year
  Sex: Female

DRUGS (7)
  1. CIALIS [Concomitant]
     Active Substance: TADALAFIL
     Dosage: 40 MG, QD
  2. VELETRI [Suspect]
     Active Substance: EPOPROSTENOL
     Indication: PULMONARY HYPERTENSION
     Dosage: 51 NG/KG, PER MIN
     Route: 042
     Dates: start: 20160401
  3. NORVASC [Concomitant]
     Active Substance: AMLODIPINE BESYLATE
     Dosage: 5 MG, QD
  4. ALDACTONE [Concomitant]
     Active Substance: SPIRONOLACTONE
     Dosage: 25 MG, QD
  5. ZYRTEC [Concomitant]
     Active Substance: CETIRIZINE HYDROCHLORIDE
     Dosage: 10 MG, QD
  6. DOBUTAMINE [Concomitant]
     Active Substance: DOBUTAMINE\DOBUTAMINE HYDROCHLORIDE
     Dosage: 2 UNK, PER MIN
     Dates: start: 201605
  7. DIGOXIN. [Concomitant]
     Active Substance: DIGOXIN
     Dosage: 0.125 MG, QD

REACTIONS (16)
  - Gastric ulcer [Recovered/Resolved]
  - Transfusion [Recovered/Resolved]
  - Gastric ulcer surgery [Recovered/Resolved]
  - Red blood cell count decreased [Recovered/Resolved]
  - Heart rate increased [Unknown]
  - Chest pain [Unknown]
  - Weight decreased [Recovered/Resolved]
  - Hypertension [Unknown]
  - Treatment noncompliance [Unknown]
  - Headache [Unknown]
  - Platelet transfusion [Recovered/Resolved]
  - Dyspnoea [Recovered/Resolved]
  - Intestinal polyp [Recovered/Resolved]
  - Polypectomy [Recovered/Resolved]
  - Decreased appetite [Recovered/Resolved]
  - Platelet count decreased [Recovered/Resolved]

NARRATIVE: CASE EVENT DATE: 20160523
